FAERS Safety Report 4701237-4 (Version None)
Quarter: 2005Q2

REPORT INFORMATION
  Report Type: 
  Country: None (occurrence: None)
  Receive Date: 20050628
  Receipt Date: 20050622
  Transmission Date: 20051028
  Serious: Yes (Life-Threatening, Other)
  Sender: FDA-Public Use
  Company Number: GB-MERCK-0506USA03263

PATIENT
  Age: 56 Year
  Sex: Male

DRUGS (4)
  1. PRINIVIL [Suspect]
     Indication: ESSENTIAL HYPERTENSION
     Route: 048
     Dates: start: 20050207, end: 20050617
  2. ATENOLOL [Concomitant]
     Route: 065
     Dates: start: 20040906
  3. AMLODIPINE BESYLATE [Concomitant]
     Route: 065
     Dates: start: 20040906
  4. OMEPRAZOLE [Concomitant]
     Route: 065
     Dates: end: 20050510

REACTIONS (2)
  - BLOOD CREATINE PHOSPHOKINASE INCREASED [None]
  - MYOSITIS [None]
